FAERS Safety Report 7901038-X (Version None)
Quarter: 2011Q4

REPORT INFORMATION
  Report Type: 
  Country: None (occurrence: None)
  Receive Date: 20111108
  Receipt Date: 20111103
  Transmission Date: 20120403
  Serious: Yes (Hospitalization)
  Sender: FDA-Public Use
  Company Number: DK-PFIZER INC-2011268763

PATIENT
  Age: 66 Year
  Sex: Male
  Weight: 79 kg

DRUGS (1)
  1. SUNITINIB MALATE [Suspect]
     Indication: METASTATIC RENAL CELL CARCINOMA
     Dosage: 50 MG, 1X/DAY IN 27 DAYS THEN PAUSE IN 26 DAYS
     Dates: start: 20081113, end: 20090907

REACTIONS (3)
  - ULCER HAEMORRHAGE [None]
  - THROMBOCYTOPENIA [None]
  - OESOPHAGEAL CANDIDIASIS [None]
